FAERS Safety Report 5310842-6 (Version None)
Quarter: 2007Q2

REPORT INFORMATION
  Report Type: 
  Country: None (occurrence: None)
  Receive Date: 20070428
  Receipt Date: 20070419
  Transmission Date: 20071010
  Serious: Yes (Other)
  Sender: FDA-Public Use
  Company Number: CA-PFIZER INC-2004020071

PATIENT
  Sex: Female
  Weight: 61.2 kg

DRUGS (6)
  1. DILANTIN [Suspect]
     Indication: CONVULSION
     Route: 048
  2. MONTELUKAST SODIUM [Concomitant]
     Route: 048
  3. DIPHENHYDRAMINE HCL [Concomitant]
     Route: 048
  4. ADVIL [Concomitant]
     Route: 065
  5. PRIMIDONE [Concomitant]
  6. SYNTHROID [Concomitant]

REACTIONS (25)
  - ADVERSE EVENT [None]
  - ANAPHYLACTIC REACTION [None]
  - ANTICONVULSANT DRUG LEVEL DECREASED [None]
  - BLOOD GLUCOSE DECREASED [None]
  - CHEST PAIN [None]
  - CHOKING SENSATION [None]
  - DIZZINESS [None]
  - DRUG CLEARANCE INCREASED [None]
  - DRUG TOXICITY [None]
  - DYSGEUSIA [None]
  - DYSPNOEA [None]
  - FEELING HOT [None]
  - HEADACHE [None]
  - HYPERSENSITIVITY [None]
  - HYPOTHYROIDISM [None]
  - LIP BLISTER [None]
  - LIP DISORDER [None]
  - LIP SWELLING [None]
  - PAROSMIA [None]
  - RESPIRATORY DISTRESS [None]
  - SKIN DISCOLOURATION [None]
  - TACHYCARDIA [None]
  - THROAT TIGHTNESS [None]
  - UNEVALUABLE EVENT [None]
  - VERTIGO [None]
